FAERS Safety Report 9411692 (Version 1)
Quarter: 2013Q3

REPORT INFORMATION
  Report Type: Spontaneous
  Country: US (occurrence: US)
  Receive Date: 20130722
  Receipt Date: 20130722
  Transmission Date: 20140515
  Serious: No
  Sender: FDA-Public Use
  Company Number: US-B.I. PHARMACEUTICALS,INC./RIDGEFIELD-2013-BI-21069BP

PATIENT
  Age: 62 Year
  Sex: Female

DRUGS (1)
  1. SPIRIVA [Suspect]
     Indication: EMPHYSEMA
     Dosage: 18 MG
     Route: 055
     Dates: start: 2010

REACTIONS (2)
  - Fall [Recovered/Resolved]
  - Pelvic fracture [Not Recovered/Not Resolved]
